FAERS Safety Report 7028668-4 (Version None)
Quarter: 2010Q3

REPORT INFORMATION
  Report Type: 
  Country: None (occurrence: None)
  Receive Date: 20100920
  Receipt Date: 20100119
  Transmission Date: 20110219
  Serious: Yes (Other)
  Sender: FDA-Public Use
  Company Number: 2010007896

PATIENT
  Age: 48 Year
  Sex: Female

DRUGS (2)
  1. DILANTIN-125 [Suspect]
     Indication: CONVULSION
     Dosage: 100 MG, 3X/DAY, ORAL
     Route: 048
  2. DILANTIN [Suspect]
     Indication: CONVULSION
     Dosage: 1 G, UNK

REACTIONS (1)
  - STEVENS-JOHNSON SYNDROME [None]
